FAERS Safety Report 5603268-9 (Version None)
Quarter: 2008Q1

REPORT INFORMATION
  Report Type: 
  Country: None (occurrence: None)
  Receive Date: 20080122
  Receipt Date: 20080109
  Transmission Date: 20080703
  Serious: Yes (Hospitalization)
  Sender: FDA-Public Use
  Company Number: S08-FRA-00225-01

PATIENT
  Age: 43 Year
  Sex: Female

DRUGS (1)
  1. ESCITALOPRAM [Suspect]
     Indication: ANXIETY
     Dosage: ANXIETY
     Dates: start: 20070801, end: 20070801

REACTIONS (10)
  - ANXIETY [None]
  - CONFUSIONAL STATE [None]
  - DEPRESSION [None]
  - DISORIENTATION [None]
  - MEMORY IMPAIRMENT [None]
  - MENTAL DISORDER [None]
  - PSYCHOMOTOR SKILLS IMPAIRED [None]
  - SELF ESTEEM DECREASED [None]
  - SELF-MEDICATION [None]
  - WITHDRAWAL SYNDROME [None]
